FAERS Safety Report 9224337 (Version 1)
Quarter: 2013Q2

REPORT INFORMATION
  Report Type: Spontaneous
  Country: US (occurrence: US)
  Receive Date: 20130411
  Receipt Date: 20130411
  Transmission Date: 20140414
  Serious: Yes (Death)
  Sender: FDA-Public Use
  Company Number: PHEH2013US008053

PATIENT
  Age: 81 Year
  Sex: Male

DRUGS (9)
  1. EXJADE [Suspect]
     Indication: IRON OVERLOAD
     Dosage: 4 DF, DAILY
     Route: 048
  2. VIDAZA [Concomitant]
  3. FINASTERIDE [Concomitant]
  4. FLOMAX [Concomitant]
  5. VITAMIN B6 [Concomitant]
  6. FOLIC ACID [Concomitant]
  7. NEXIUM [Concomitant]
  8. VITAMIN B12 [Concomitant]
  9. EPOGEN [Concomitant]

REACTIONS (1)
  - Death [Fatal]
